FAERS Safety Report 12886755 (Version 1)
Quarter: 2016Q4

REPORT INFORMATION
  Report Type: Spontaneous
  Country: US (occurrence: US)
  Receive Date: 20161026
  Receipt Date: 20161026
  Transmission Date: 20170207
  Serious: Yes (Life-Threatening)
  Sender: FDA-Public Use
  Company Number: US-LPDUSPRD-20160941

PATIENT
  Age: 43 Year
  Sex: Male

DRUGS (3)
  1. MANNITOL INJECTION, USP (4050-25) [Suspect]
     Active Substance: MANNITOL
     Dosage: 80 G
     Route: 042
  2. DEXAMETHASONE SODIUM PHOSPHATE INJECTION, USP (4901-25) [Concomitant]
     Active Substance: DEXAMETHASONE SODIUM PHOSPHATE
     Dosage: 6 MG EVERY 6 HOURS
     Route: 065
  3. LEVETIRACETAM INJECTION (0517-3605-01) [Concomitant]
     Active Substance: LEVETIRACETAM
     Dosage: 500 MG EVERY 12 HOURS
     Route: 065

REACTIONS (2)
  - Hyperkalaemia [Unknown]
  - Cardiac arrest [Unknown]
